FAERS Safety Report 9921062 (Version 2)
Quarter: 2014Q1

REPORT INFORMATION
  Report Type: Spontaneous
  Country: US (occurrence: US)
  Receive Date: 20140225
  Receipt Date: 20140225
  Transmission Date: 20141002
  Serious: Yes (Other)
  Sender: FDA-Public Use
  Company Number: US-BRISTOL-MYERS SQUIBB COMPANY-20105250

PATIENT
  Age: 56 Year
  Sex: Female

DRUGS (12)
  1. BYETTA [Suspect]
     Indication: TYPE 2 DIABETES MELLITUS
     Dosage: DEC2009-3DYS,DEC2010-3 MONTHS,FEB2011-1 MONTH
     Route: 058
     Dates: start: 200912
  2. LYRICA [Concomitant]
  3. SYNTHROID [Concomitant]
  4. LORAZEPAM [Concomitant]
  5. LORTAB [Concomitant]
  6. CELEBREX [Concomitant]
  7. ATENOLOL [Concomitant]
  8. HCTZ [Concomitant]
  9. ASA [Concomitant]
  10. CALCIUM [Concomitant]
  11. SPIRIVA [Concomitant]
  12. NIASPAN [Concomitant]

REACTIONS (3)
  - Systemic lupus erythematosus [Unknown]
  - Vasculitis [Unknown]
  - Calcinosis [Unknown]
